FAERS Safety Report 9796465 (Version 2)
Quarter: 2014Q1

REPORT INFORMATION
  Report Type: Spontaneous
  Country: PT (occurrence: PT)
  Receive Date: 20140103
  Receipt Date: 20140110
  Transmission Date: 20141002
  Serious: Yes (Other)
  Sender: FDA-Public Use
  Company Number: PT-TEVA-452524ISR

PATIENT
  Age: 37 Year
  Sex: Male

DRUGS (6)
  1. TEVAGRASTIM [Suspect]
     Indication: NEUTROPENIA
     Route: 058
     Dates: start: 20131112, end: 20131202
  2. TRUVADA [Suspect]
     Indication: HIV INFECTION
     Dosage: 1 DOSAGE FORMS DAILY;
     Route: 048
     Dates: start: 20131111, end: 20131127
  3. BACTRIM FORTE [Concomitant]
     Indication: ANTIFUNGAL PROPHYLAXIS
     Dosage: 960 MILLIGRAM DAILY;
     Route: 048
     Dates: start: 20131107, end: 20131118
  4. PREZISTA [Concomitant]
     Indication: HIV INFECTION
     Dosage: 800 MILLIGRAM DAILY;
     Route: 048
     Dates: start: 20131111, end: 20131118
  5. FLUCLOXACILINA FLOXIL 500 MG C?PSULAS [Concomitant]
     Indication: INFECTED SKIN ULCER
     Dosage: 2000 MILLIGRAM DAILY;
     Route: 048
     Dates: start: 20131111, end: 20131127
  6. NORVIR [Concomitant]
     Indication: HIV INFECTION
     Dosage: 100 MILLIGRAM DAILY;
     Route: 048
     Dates: start: 20131111, end: 20131126

REACTIONS (3)
  - Erythema [Recovered/Resolved]
  - Pruritus [Recovered/Resolved]
  - Rash maculo-papular [Recovered/Resolved]
